FAERS Safety Report 17078390 (Version 1)
Quarter: 2019Q4

REPORT INFORMATION
  Report Type: Spontaneous
  Country: CN (occurrence: CN)
  Receive Date: 20191126
  Receipt Date: 20191126
  Transmission Date: 20200122
  Serious: Yes (Hospitalization)
  Sender: FDA-Public Use
  Company Number: CN-BAXTER-2019BAX023694

PATIENT
  Age: 40 Year
  Sex: Female
  Weight: 58 kg

DRUGS (8)
  1. ENDOXAN [Suspect]
     Active Substance: CYCLOPHOSPHAMIDE
     Dosage: DOSE RE-INTRODUCTION, ENDOXAN + NS
     Route: 042
     Dates: start: 201911
  2. 0.9% SODIUM CHLORIDE INJECTION [Suspect]
     Active Substance: SODIUM CHLORIDE
     Dosage: DOSE RE-INTRODUCTION, ENDOXAN + NS
     Route: 042
     Dates: start: 201911
  3. SODIUM CHLORIDE. [Suspect]
     Active Substance: SODIUM CHLORIDE
     Indication: MEDICATION DILUTION
     Dosage: AISU OF 120 MG + NS
     Route: 041
     Dates: start: 20191019, end: 20191019
  4. 0.9% SODIUM CHLORIDE INJECTION [Suspect]
     Active Substance: SODIUM CHLORIDE
     Indication: MEDICATION DILUTION
     Dosage: ENDOXAN 0.9 G + SODIUM CHLORIDE [NS]
     Route: 042
     Dates: start: 20191019, end: 20191019
  5. AI SU [Suspect]
     Active Substance: DOCETAXEL
     Indication: BREAST CANCER
     Dosage: AISU + NS OF 250 ML
     Route: 041
     Dates: start: 20191019, end: 20191019
  6. ENDOXAN [Suspect]
     Active Substance: CYCLOPHOSPHAMIDE
     Indication: BREAST CANCER
     Dosage: ENDOXAN + SODIUM CHLORIDE [NS] OF 40 ML
     Route: 042
     Dates: start: 20191019, end: 20191019
  7. AI SU [Suspect]
     Active Substance: DOCETAXEL
     Dosage: DOSE RE-INTRODUCTION, AISU + NS
     Route: 041
     Dates: start: 201911
  8. SODIUM CHLORIDE. [Suspect]
     Active Substance: SODIUM CHLORIDE
     Dosage: DOSE RE-INTRODUCTION, AISU + NS
     Route: 041
     Dates: start: 201911

REACTIONS (1)
  - Hepatic lesion [Recovering/Resolving]

NARRATIVE: CASE EVENT DATE: 20191107
